FAERS Safety Report 5157409-0 (Version None)
Quarter: 2006Q4

REPORT INFORMATION
  Report Type: 
  Country: None (occurrence: None)
  Receive Date: 20061116
  Receipt Date: 20061101
  Transmission Date: 20070319
  Serious: Yes (Other)
  Sender: FDA-Public Use
  Company Number: 008387

PATIENT
  Age: 26 Year
  Sex: Female

DRUGS (6)
  1. CLARAVIS [Suspect]
     Indication: DRUG USE FOR UNKNOWN INDICATION
     Dosage: 40 MG, QD, ORAL; SEE IMAGE
     Route: 048
     Dates: start: 20051207, end: 20060101
  2. CLARAVIS [Suspect]
     Indication: DRUG USE FOR UNKNOWN INDICATION
     Dosage: 40 MG, QD, ORAL; SEE IMAGE
     Route: 048
     Dates: start: 20060101, end: 20060813
  3. ORTHO TRI-CYCLEN LO [Suspect]
     Indication: ORAL CONTRACEPTION
     Dosage: 1 TABLET, QD, ORAL
     Route: 048
  4. CHITOSAN (POLIGLUSAM) [Concomitant]
  5. ISOTRIM (SULFAMETHOXAZOLE, TRIMETHOPRIM) [Concomitant]
  6. VITA-PAK [Concomitant]

REACTIONS (4)
  - DRUG DOSE OMISSION [None]
  - DRUG EXPOSURE DURING PREGNANCY [None]
  - PREGNANCY ON ORAL CONTRACEPTIVE [None]
  - TREATMENT NONCOMPLIANCE [None]
